FAERS Safety Report 4360339-5 (Version None)
Quarter: 2004Q2

REPORT INFORMATION
  Report Type: 
  Country: None (occurrence: None)
  Receive Date: 20040514
  Receipt Date: 20040505
  Transmission Date: 20050107
  Serious: Yes (Hospitalization)
  Sender: FDA-Public Use
  Company Number: 2004CG00882

PATIENT
  Age: 25 Year
  Sex: Male

DRUGS (3)
  1. CRESTOR [Suspect]
     Indication: DYSLIPIDAEMIA
     Dates: start: 20040420, end: 20040430
  2. KARDEGIC /FRA/ [Concomitant]
  3. AMLODIPINE [Concomitant]

REACTIONS (2)
  - ABDOMINAL PAIN [None]
  - THROMBOTIC THROMBOCYTOPENIC PURPURA [None]
